FAERS Safety Report 25153348 (Version 2)
Quarter: 2025Q2

REPORT INFORMATION
  Report Type: Spontaneous
  Country: ES (occurrence: ES)
  Receive Date: 20250403
  Receipt Date: 20250407
  Transmission Date: 20250717
  Serious: Yes (Life-Threatening, Hospitalization)
  Sender: JOHNSON AND JOHNSON
  Company Number: None

PATIENT
  Age: 67 Year
  Sex: Male

DRUGS (7)
  1. RISPERDAL [Suspect]
     Active Substance: RISPERIDONE
     Indication: Agitation
     Route: 048
     Dates: start: 20250316, end: 20250316
  2. RISPERDAL [Suspect]
     Active Substance: RISPERIDONE
  3. ZYPREXA [Suspect]
     Active Substance: OLANZAPINE
     Indication: Agitation
     Route: 030
     Dates: start: 20250214, end: 20250214
  4. TIAPRIDE HYDROCHLORIDE [Suspect]
     Active Substance: TIAPRIDE HYDROCHLORIDE
     Indication: Agitation
     Dosage: 100MG/24H
     Route: 030
     Dates: start: 20250317, end: 20250319
  5. OMEPRAZOL [OMEPRAZOLE SODIUM] [Concomitant]
     Indication: Product used for unknown indication
     Dosage: 20MG/24H
     Route: 048
     Dates: start: 20231228, end: 20250320
  6. ALDACTONE [Concomitant]
     Active Substance: SPIRONOLACTONE
     Indication: Hypertension
     Dosage: 50MG/24H
     Route: 048
     Dates: start: 20250203
  7. ENALAPRIL MALEATE [Concomitant]
     Active Substance: ENALAPRIL MALEATE
     Indication: Hypertension
     Dosage: 5MG/24H
     Route: 048
     Dates: start: 20250207, end: 20250320

REACTIONS (1)
  - Agranulocytosis [Recovered/Resolved]

NARRATIVE: CASE EVENT DATE: 20250319
